FAERS Safety Report 7781835-4 (Version None)
Quarter: 2011Q3

REPORT INFORMATION
  Report Type: 
  Country: None (occurrence: None)
  Receive Date: 20110927
  Receipt Date: 20110922
  Transmission Date: 20111222
  Serious: Yes (Other)
  Sender: FDA-Public Use
  Company Number: GB-TEVA-302028ISR

PATIENT
  Sex: Male

DRUGS (8)
  1. OMEPRAZOLE [Suspect]
     Route: 048
  2. MIRTAZAPINE [Suspect]
     Route: 048
  3. ONDANSETRON [Concomitant]
  4. PREDNISOLONE [Concomitant]
     Route: 048
  5. DOMPERIDONE [Concomitant]
     Route: 048
  6. ACETAMINOPHEN [Concomitant]
     Route: 048
  7. AMITRIPTYLINE HCL [Suspect]
     Route: 048
  8. QUININE SULFATE [Concomitant]
     Route: 048

REACTIONS (2)
  - URINE SODIUM DECREASED [None]
  - BLOOD SODIUM DECREASED [None]
